FAERS Safety Report 6091691-0 (Version None)
Quarter: 2009Q1

REPORT INFORMATION
  Report Type: 
  Country: None (occurrence: None)
  Receive Date: 20090225
  Receipt Date: 20080411
  Transmission Date: 20090719
  Serious: No
  Sender: FDA-Public Use
  Company Number: A0722357A

PATIENT
  Age: 62 Year
  Sex: Female

DRUGS (4)
  1. VALTREX [Suspect]
     Dosage: 1G THREE TIMES PER DAY
     Route: 048
     Dates: start: 20080402, end: 20080408
  2. NEURONTIN [Concomitant]
  3. IMIPRAMINE [Concomitant]
  4. ALPRAZOLAM [Concomitant]

REACTIONS (2)
  - BURNING SENSATION [None]
  - DRUG INEFFECTIVE [None]
